FAERS Safety Report 8951127 (Version 2)
Quarter: 2013Q3

REPORT INFORMATION
  Report Type: Spontaneous
  Country: US (occurrence: None)
  Receive Date: 20121105
  Receipt Date: 20130716
  Transmission Date: 20140515
  Serious: Yes (Death, Hospitalization)
  Sender: FDA-Public Use
  Company Number: 2012PROUSA02186

PATIENT
  Age: 56 Year
  Sex: Male
  Weight: 106.6 kg

DRUGS (17)
  1. PROVENGE (SIPULEUCEL-T) SUSPENSION [Suspect]
     Indication: PROSTATE CANCER METASTATIC
     Route: 042
     Dates: start: 20120702, end: 20120702
  2. ZOLPIDEM TARTRATE (ZOLPIDEM TARTRATE) [Concomitant]
  3. AMPHETAMINE SALTS (AMFETAMINE SULFATE) [Concomitant]
  4. CALCIUM CARBONATE/VITAMIN D3 (CALCIUM CARBONATE, COLECALCIFEROL) [Concomitant]
  5. GABAPENTIN (GABAPENTIN) [Concomitant]
  6. ATORVASTATIN CALCIUM (ATORVASTATIN CALCIUM) [Concomitant]
  7. ATORVASTATIN CALCIUM (ATORVASTATIN CALCIUM) [Concomitant]
  8. LISINOPRIL (LISINOPRIL) [Concomitant]
  9. METFORMIN HCL (METFORMIN HYDROCHLORIDE) [Concomitant]
  10. MULTIVITAMIN (VITAMIN NOS) [Concomitant]
  11. QUETIAPINE FUMARATE (QUETIAPINE FUMARATE) [Concomitant]
  12. SERTRALINE (SERTRALINE HYDROCHLORIDE) [Concomitant]
  13. TAMSULOSIN HCL [Concomitant]
  14. TERAZOSIN HCL (TERAZOSIN HYDROCHLORIDE) [Concomitant]
  15. RANITIDINE HCL (RANITIDINE HYDROCHLORIDE) [Concomitant]
  16. NAPROXEN SODIUM (NAPROXEN SODIUM) [Concomitant]
  17. ASPRIRIN (ACETYLSALICYLIC ACID) [Concomitant]

REACTIONS (11)
  - Fall [None]
  - Leukocytosis [None]
  - Hyponatraemia [None]
  - Asthenia [None]
  - Anaemia [None]
  - Metastases to bone marrow [None]
  - Head injury [None]
  - Subdural haematoma [None]
  - Prostate cancer [None]
  - Neutrophil percentage decreased [None]
  - Pain [None]
